FAERS Safety Report 6219329-X (Version None)
Quarter: 2009Q2

REPORT INFORMATION
  Report Type: 
  Country: None (occurrence: None)
  Receive Date: 20090609
  Receipt Date: 20090603
  Transmission Date: 20091009
  Serious: Yes (Hospitalization)
  Sender: FDA-Public Use
  Company Number: FR-PFIZER INC-2009221817

PATIENT
  Age: 79 Year

DRUGS (6)
  1. TAHOR [Suspect]
     Indication: HYPERCHOLESTEROLAEMIA
     Dosage: 20 MG, 1X/DAY
     Route: 048
     Dates: start: 20090215
  2. PREVISCAN [Interacting]
     Indication: THROMBOSIS PROPHYLAXIS
     Dosage: ACCORDING TO INR
     Route: 048
     Dates: start: 20090206, end: 20090505
  3. PREVISCAN [Interacting]
     Dosage: UNK
     Route: 048
     Dates: start: 20090510, end: 20090514
  4. LEVOTHYROX [Interacting]
     Indication: HYPOTHYROIDISM
     Dosage: 100 UG, 1X/DAY
     Route: 048
  5. NEXIUM [Concomitant]
     Indication: PROPHYLAXIS AGAINST GASTROINTESTINAL ULCER
     Dosage: 40 MG, 1X/DAY
     Route: 048
     Dates: start: 20090215
  6. FLECAINIDE ACETATE [Concomitant]
     Indication: ARRHYTHMIA
     Dosage: UNK
     Route: 048

REACTIONS (2)
  - DRUG INTERACTION [None]
  - SUBDURAL HAEMATOMA [None]
